FAERS Safety Report 6384581-7 (Version None)
Quarter: 2009Q4

REPORT INFORMATION
  Report Type: 
  Country: None (occurrence: None)
  Receive Date: 20091001
  Receipt Date: 20090918
  Transmission Date: 20100525
  Serious: Yes (Other)
  Sender: FDA-Public Use
  Company Number: PHEH2009US11718

PATIENT
  Sex: Female

DRUGS (2)
  1. DIOVAN [Suspect]
  2. FLUVIRIN [Suspect]

REACTIONS (1)
  - HALLUCINATION [None]
